FAERS Safety Report 6686617-2 (Version None)
Quarter: 2010Q2

REPORT INFORMATION
  Report Type: 
  Country: None (occurrence: None)
  Receive Date: 20100419
  Receipt Date: 20100406
  Transmission Date: 20101027
  Serious: Yes (Other)
  Sender: FDA-Public Use
  Company Number: US-ELI_LILLY_AND_COMPANY-US201004001908

PATIENT
  Sex: Female
  Weight: 92.971 kg

DRUGS (1)
  1. HUMATROPE [Suspect]
     Indication: BRAIN INJURY
     Dosage: UNK, EACH EVENING
     Dates: start: 20030101

REACTIONS (5)
  - FLUID RETENTION [None]
  - MEMORY IMPAIRMENT [None]
  - PULMONARY EMBOLISM [None]
  - ROAD TRAFFIC ACCIDENT [None]
  - WEIGHT INCREASED [None]
